FAERS Safety Report 17011847 (Version 1)
Quarter: 2019Q4

REPORT INFORMATION
  Report Type: Spontaneous
  Country: FR (occurrence: FR)
  Receive Date: 20191108
  Receipt Date: 20191108
  Transmission Date: 20200122
  Serious: Yes (Other)
  Sender: FDA-Public Use
  Company Number: FR-MYLANLABS-2019M1105183

PATIENT
  Age: 60 Year
  Sex: Female
  Weight: 110 kg

DRUGS (2)
  1. LORMETAZEPAM [Suspect]
     Active Substance: LORMETAZEPAM
     Indication: PRODUCT USED FOR UNKNOWN INDICATION
     Dosage: 1 DOSAGE FORM, QD
     Route: 048
     Dates: start: 20180603, end: 20180603
  2. TRAMADOL. [Suspect]
     Active Substance: TRAMADOL
     Indication: PRODUCT USED FOR UNKNOWN INDICATION
     Dosage: 1 DOSAGE FORM, TOTAL
     Route: 048
     Dates: start: 20180603, end: 20180603

REACTIONS (5)
  - Toxicity to various agents [Recovered/Resolved]
  - Suicide attempt [Unknown]
  - Somnolence [Recovered/Resolved]
  - Analgesic drug level increased [Recovered/Resolved]
  - Bradyphrenia [Recovered/Resolved]

NARRATIVE: CASE EVENT DATE: 20180603
